FAERS Safety Report 18029762 (Version 1)
Quarter: 2020Q3

REPORT INFORMATION
  Report Type: Spontaneous
  Country: CH (occurrence: CH)
  Receive Date: 20200716
  Receipt Date: 20200716
  Transmission Date: 20201103
  Serious: Yes (Life-Threatening, Hospitalization, Other)
  Sender: FDA-Public Use
  Company Number: CH-GLAXOSMITHKLINE-CH2020128330

PATIENT
  Age: 52 Year

DRUGS (28)
  1. HEPARIN CALCIUM [Suspect]
     Active Substance: HEPARIN CALCIUM
     Indication: PRODUCT USED FOR UNKNOWN INDICATION
     Dosage: 5000 IU, BID (SUBCUTAN)
     Route: 058
     Dates: start: 20200530, end: 20200603
  2. CEFEPIME [Concomitant]
     Active Substance: CEFEPIME HYDROCHLORIDE
     Indication: PRODUCT USED FOR UNKNOWN INDICATION
     Dosage: 1000 MG, QD
     Route: 065
     Dates: start: 20200515, end: 20200519
  3. METRONIDAZOL [Suspect]
     Active Substance: METRONIDAZOLE
     Indication: PRODUCT USED FOR UNKNOWN INDICATION
     Dosage: 500 MG, TID (PER OS)
     Route: 065
     Dates: start: 20200515, end: 20200519
  4. CYTOSAR [Suspect]
     Active Substance: CYTARABINE
     Indication: PRODUCT USED FOR UNKNOWN INDICATION
     Dosage: 370 MG, QD
     Route: 065
     Dates: start: 20200508, end: 20200514
  5. LITALIR [Suspect]
     Active Substance: HYDROXYUREA
     Indication: PRODUCT USED FOR UNKNOWN INDICATION
     Dosage: 2000 MG, QD
     Route: 065
     Dates: start: 20200504, end: 20200507
  6. DAPTOMYCINE [Suspect]
     Active Substance: DAPTOMYCIN
     Indication: PRODUCT USED FOR UNKNOWN INDICATION
     Dosage: 700 MG 48 HR(INTRAVENOUSLY)
     Route: 042
     Dates: start: 20200523, end: 20200603
  7. MIDAZOLAMUM [Concomitant]
     Active Substance: MIDAZOLAM HYDROCHLORIDE
     Indication: PRODUCT USED FOR UNKNOWN INDICATION
     Dosage: 500 MG (RESERVE 0.5MG WISE UP TO MAX. 3G A DAY)
     Route: 065
     Dates: start: 20200505, end: 20200606
  8. VALTREX [Suspect]
     Active Substance: VALACYCLOVIR HYDROCHLORIDE
     Indication: PRODUCT USED FOR UNKNOWN INDICATION
     Dosage: 500 MG, BID
     Route: 065
     Dates: start: 20200508, end: 20200519
  9. MEROPENEM. [Suspect]
     Active Substance: MEROPENEM
     Indication: PRODUCT USED FOR UNKNOWN INDICATION
     Dosage: 2 G, QD (1?2 G INTRAVENOUSLY DAILY)
     Dates: start: 20200523, end: 20200604
  10. NALOXONE [Concomitant]
     Active Substance: NALOXONE
     Indication: PRODUCT USED FOR UNKNOWN INDICATION
     Dosage: 0.4 MG (0.4MG WISE UNTIL SYMPTOMS IMPROVE)
     Route: 065
     Dates: start: 20200521, end: 20200603
  11. NEXIUM [Suspect]
     Active Substance: ESOMEPRAZOLE MAGNESIUM
     Indication: PRODUCT USED FOR UNKNOWN INDICATION
     Dosage: 40 MG (VARIABLE DOSAGE OF 40?80 MG ADMINISTERED BOTH ORALLY AND INTRAVENOUSLY)
     Route: 048
     Dates: start: 20200504, end: 20200606
  12. METAMIZOL [Concomitant]
     Active Substance: METAMIZOLE SODIUM
     Indication: PRODUCT USED FOR UNKNOWN INDICATION
     Dosage: 500 MG 4 HR
     Route: 065
     Dates: start: 20200515, end: 20200606
  13. METOCLOPRAMID [Concomitant]
     Active Substance: METOCLOPRAMIDE
     Indication: PRODUCT USED FOR UNKNOWN INDICATION
     Dosage: 10 MG, TID
     Route: 065
     Dates: start: 20200520, end: 20200520
  14. PREDNISOLON [Concomitant]
     Active Substance: PREDNISOLONE
     Indication: PRODUCT USED FOR UNKNOWN INDICATION
     Dosage: 125 MG, QD
     Route: 065
     Dates: start: 20200508, end: 20200514
  15. ACICLOVIR [Suspect]
     Active Substance: ACYCLOVIR
     Indication: PRODUCT USED FOR UNKNOWN INDICATION
     Dosage: 200 MG, BID
     Route: 065
     Dates: start: 20200520, end: 20200611
  16. METRONIDAZOL [Suspect]
     Active Substance: METRONIDAZOLE
     Dosage: 500 MG, TID (INTRAVENOUSLY)
     Route: 065
     Dates: start: 20200525, end: 20200529
  17. ZAVEDOS [Suspect]
     Active Substance: IDARUBICIN
     Indication: PRODUCT USED FOR UNKNOWN INDICATION
     Dosage: 22.5 MG, QD
     Route: 065
     Dates: start: 20200508, end: 20200514
  18. NEXIUM [Suspect]
     Active Substance: ESOMEPRAZOLE MAGNESIUM
     Dosage: 40 MG (VARIABLE DOSAGE OF 40?80 MG ADMINISTERED BOTH ORALLY AND INTRAVENOUSLY)
     Dates: start: 20200504, end: 20200606
  19. KETAMINE [Concomitant]
     Active Substance: KETAMINE
     Indication: PRODUCT USED FOR UNKNOWN INDICATION
     Dosage: 250 MG, QD (INTRAVENOUSLY)
     Route: 042
     Dates: start: 20200603, end: 20200606
  20. NOXAFIL [Suspect]
     Active Substance: POSACONAZOLE
     Indication: PRODUCT USED FOR UNKNOWN INDICATION
     Dosage: 300 MG, QD
     Route: 065
     Dates: start: 20200508, end: 20200604
  21. CIPROFLOXACIN. [Concomitant]
     Active Substance: CIPROFLOXACIN
     Indication: PRODUCT USED FOR UNKNOWN INDICATION
     Dosage: 200 MG (INTRAVENOUSLY)
     Route: 042
     Dates: start: 20200519
  22. PIPERACILLIN SODIUM + SULBACTAM [Concomitant]
     Indication: PRODUCT USED FOR UNKNOWN INDICATION
     Dosage: 2.25 MG, TID(VARIABLE DOSAGE OF KIDNEY FUNCTION ADJUSTED FROM 2.25MG 1?1?1 DAILY UP TO A TOTAL OF 9M
     Route: 065
     Dates: start: 20200519, end: 20200523
  23. RYDAPT [Suspect]
     Active Substance: MIDOSTAURIN
     Indication: PRODUCT USED FOR UNKNOWN INDICATION
     Dosage: 50 MG, QD
     Route: 065
     Dates: start: 20200515, end: 20200519
  24. MORPHIN [Suspect]
     Active Substance: MORPHINE
     Indication: PRODUCT USED FOR UNKNOWN INDICATION
     Dosage: 20 MG, QD(VARIABLE DOSAGE, 0?20MG IN RESERVE DAILY, AS WELL AS VARIABLE FIXED MEDICATION, MAXIMUM TO
     Route: 065
     Dates: start: 20200505, end: 20200526
  25. PARACETAMOL [Concomitant]
     Active Substance: ACETAMINOPHEN
     Indication: PRODUCT USED FOR UNKNOWN INDICATION
     Dosage: 0.5 G, QD (VARIABLE DOSAGE FROM 05.05.2020?29.05.2020FROM 0.5?4G DAILY.)
     Route: 065
     Dates: start: 20200505, end: 20200529
  26. LORAZEPAM. [Concomitant]
     Active Substance: LORAZEPAM
     Indication: PRODUCT USED FOR UNKNOWN INDICATION
     Dosage: 1 MG, QD (RESERVE MEDICATION 1MG?WISE, MAXIMUM 1MG DAILY)
     Route: 065
  27. KONAKION [Concomitant]
     Active Substance: PHYTONADIONE
     Indication: PRODUCT USED FOR UNKNOWN INDICATION
     Dosage: VARIABLE DOSAGE ACCORDING TO INR, ADMINISTRATION ON 07.05., 13.05., 16?19.05. BOTH INSIDE AND OUT
     Route: 065
  28. ONDANSETRONUM [Concomitant]
     Active Substance: ONDANSETRON
     Indication: PRODUCT USED FOR UNKNOWN INDICATION
     Dosage: VARIABLE INTAKE 08.05.?19.05.2020 PER OS IN 4MG TABLET FORM.
     Route: 065
     Dates: start: 20200508, end: 20200519

REACTIONS (7)
  - Overdose [Recovered/Resolved]
  - Intestinal haemorrhage [Recovered/Resolved]
  - Neutropenic colitis [Recovered/Resolved]
  - Pancytopenia [Recovering/Resolving]
  - Drug-induced liver injury [Recovering/Resolving]
  - Febrile neutropenia [Recovered/Resolved]
  - Acute myeloid leukaemia [Unknown]

NARRATIVE: CASE EVENT DATE: 2020
